FAERS Safety Report 4416693-9 (Version None)
Quarter: 2004Q3

REPORT INFORMATION
  Report Type: 
  Country: None (occurrence: None)
  Receive Date: 20040805
  Receipt Date: 20031013
  Transmission Date: 20050211
  Serious: Yes (Life-Threatening)
  Sender: FDA-Public Use
  Company Number: US-MERCK-0310USA01509

PATIENT
  Age: 74 Year
  Sex: Female
  Weight: 61 kg

DRUGS (6)
  1. HYDRODIURIL [Concomitant]
     Route: 065
  2. NIACIN [Concomitant]
     Route: 065
  3. AMBIEN [Concomitant]
     Route: 065
  4. ASPIRIN [Concomitant]
     Route: 065
  5. COLACE [Concomitant]
     Route: 065
  6. ZETIA [Suspect]
     Indication: HYPERLIPIDAEMIA
     Route: 048
     Dates: start: 20030530, end: 20030814

REACTIONS (1)
  - WHITE BLOOD CELL COUNT DECREASED [None]
